FAERS Safety Report 9227828 (Version 1)
Quarter: 2013Q2

REPORT INFORMATION
  Report Type: Spontaneous
  Country: US (occurrence: None)
  Receive Date: 20130411
  Receipt Date: 20130411
  Transmission Date: 20140414
  Serious: Yes (Disabling)
  Sender: FDA-Public Use
  Company Number: None

PATIENT
  Sex: 0

DRUGS (1)
  1. AVELOX [Suspect]
     Indication: GASTRIC DISORDER
     Dosage: 1 TABLET 400 MG ONCE DAILY PO
     Route: 048
     Dates: start: 20130222, end: 20130304

REACTIONS (4)
  - Swelling [None]
  - Pain [None]
  - Arthralgia [None]
  - Pain [None]
